FAERS Safety Report 11333200 (Version 1)
Quarter: 2015Q3

REPORT INFORMATION
  Report Type: Spontaneous
  Country: US (occurrence: US)
  Receive Date: 20150803
  Receipt Date: 20150803
  Transmission Date: 20151125
  Serious: No
  Sender: FDA-Public Use
  Company Number: US-ELI_LILLY_AND_COMPANY-US200708001053

PATIENT
  Age: 38 Year
  Sex: Male
  Weight: 139.68 kg

DRUGS (6)
  1. ZYPREXA [Suspect]
     Active Substance: OLANZAPINE
     Dosage: 60 MG, UNK
     Dates: end: 20070116
  2. ABILIFY [Concomitant]
     Active Substance: ARIPIPRAZOLE
  3. HALDOL [Concomitant]
     Active Substance: HALOPERIDOL
     Dates: start: 2002
  4. ZYPREXA [Suspect]
     Active Substance: OLANZAPINE
     Dosage: 20 MG, UNK
     Dates: start: 20020828
  5. GEODON [Concomitant]
     Active Substance: ZIPRASIDONE HYDROCHLORIDE\ZIPRASIDONE MESYLATE
     Dates: start: 2002
  6. DEPAKOTE [Concomitant]
     Active Substance: DIVALPROEX SODIUM
     Dates: start: 2003, end: 2004

REACTIONS (3)
  - Weight increased [Not Recovered/Not Resolved]
  - Obesity [Unknown]
  - Type 2 diabetes mellitus [Not Recovered/Not Resolved]

NARRATIVE: CASE EVENT DATE: 20051010
